FAERS Safety Report 5241795-7 (Version None)
Quarter: 2007Q1

REPORT INFORMATION
  Report Type: 
  Country: None (occurrence: None)
  Receive Date: 20070220
  Receipt Date: 20070206
  Transmission Date: 20070707
  Serious: Yes (Hospitalization)
  Sender: FDA-Public Use
  Company Number: JP-SANOFI-SYNTHELABO-A01200701654

PATIENT
  Age: 74 Year
  Sex: Female
  Weight: 46.3 kg

DRUGS (8)
  1. NORVASC [Suspect]
     Indication: HYPERTENSION
     Dosage: 1 DF
     Route: 048
     Dates: end: 20061027
  2. LOCHOL [Suspect]
     Indication: HYPERLIPIDAEMIA
     Dosage: 1 DF
     Route: 048
     Dates: end: 20061027
  3. PROTECADIN [Suspect]
     Indication: GASTRITIS
     Dosage: 2 DF
     Route: 048
     Dates: end: 20061027
  4. CYANOCOBALAMIN [Suspect]
     Indication: NEUROPATHY PERIPHERAL
     Dosage: 3 DF
     Route: 048
     Dates: end: 20061027
  5. ACTONEL [Suspect]
     Indication: OSTEOPOROSIS
     Dosage: 2.5 MG
     Route: 048
     Dates: end: 20061027
  6. MYSLEE [Suspect]
     Indication: INSOMNIA
     Dosage: 1 DF
     Route: 048
     Dates: end: 20061027
  7. BUFFERIN [Suspect]
     Indication: PROPHYLAXIS
     Dosage: 81 MG
     Route: 048
     Dates: end: 20061027
  8. VESICARE [Suspect]
     Indication: STRESS URINARY INCONTINENCE
     Dosage: 3 DF
     Route: 048
     Dates: start: 20061019, end: 20061027

REACTIONS (4)
  - HEPATITIS CHOLESTATIC [None]
  - LIVER DISORDER [None]
  - MALAISE [None]
  - PRURITUS [None]
